FAERS Safety Report 7571488-2 (Version None)
Quarter: 2011Q2

REPORT INFORMATION
  Report Type: 
  Country: None (occurrence: None)
  Receive Date: 20110624
  Receipt Date: 20110616
  Transmission Date: 20111010
  Serious: Yes (Life-Threatening)
  Sender: FDA-Public Use
  Company Number: FR-SANOFI-AVENTIS-2011SA038274

PATIENT
  Age: 67 Year
  Sex: Male

DRUGS (4)
  1. INSULIN GLARGINE [Suspect]
     Route: 065
     Dates: start: 20060101
  2. NOVORAPID [Suspect]
     Route: 065
     Dates: start: 20080101
  3. CELIPROLOL [Concomitant]
     Route: 065
  4. SIMVASTATIN [Concomitant]
     Route: 065

REACTIONS (1)
  - PANCREATIC CARCINOMA [None]
